FAERS Safety Report 9916018 (Version 1)
Quarter: 2014Q1

REPORT INFORMATION
  Report Type: Spontaneous
  Country: JP (occurrence: None)
  Receive Date: 20140219
  Receipt Date: 20140219
  Transmission Date: 20141002
  Serious: Yes (Death)
  Sender: FDA-Public Use
  Company Number: INT_00363_2014

PATIENT
  Age: 27 Year
  Sex: Female

DRUGS (3)
  1. PACLITAXEL [Suspect]
     Indication: BREAST CANCER STAGE IV
     Dosage: [WEEKLY] ). ( 90 NG.M2 , [DAYS 1, 8, 15])
     Dates: start: 2011, end: 201107
  2. BEVACIZUMAB [Suspect]
     Indication: BREAST CANCER STAGE IV
     Dosage: [DAYS 1 AND 15] )
     Dates: start: 2012, end: 2012
  3. ERIBULIN [Concomitant]

REACTIONS (9)
  - Pleural effusion [None]
  - Tumour necrosis [None]
  - Skin ulcer [None]
  - Tumour haemorrhage [None]
  - Cardio-respiratory arrest [None]
  - Lymphangiosis carcinomatosa [None]
  - Haemorrhage [None]
  - Pain [None]
  - Therapeutic response decreased [None]
